FAERS Safety Report 4831099-6 (Version None)
Quarter: 2005Q4

REPORT INFORMATION
  Report Type: 
  Country: None (occurrence: None)
  Receive Date: 20051114
  Receipt Date: 20051031
  Transmission Date: 20060501
  Serious: Yes (Other)
  Sender: FDA-Public Use
  Company Number: OMPQ-NO-0511L-1440

PATIENT
  Age: 65 Year
  Sex: Male

DRUGS (1)
  1. OMNIPAQUE 140 [Suspect]
     Indication: ABDOMINAL PAIN
     Dosage: SINGLE DOSE, IV
     Route: 042
     Dates: start: 20050101, end: 20050101

REACTIONS (4)
  - DISSEMINATED INTRAVASCULAR COAGULATION [None]
  - HEPATIC TRAUMA [None]
  - PANCREATITIS [None]
  - PLATELET COUNT DECREASED [None]
